FAERS Safety Report 8232627-3 (Version None)
Quarter: 2012Q1

REPORT INFORMATION
  Report Type: 
  Country: None (occurrence: None)
  Receive Date: 20120323
  Receipt Date: 20120309
  Transmission Date: 20120608
  Serious: Yes (Other)
  Sender: FDA-Public Use
  Company Number: CHPA2012US004838

PATIENT
  Age: 53 Year
  Sex: Male

DRUGS (2)
  1. METOPROLOL SUCCINATE [Concomitant]
     Indication: HYPERTENSION
     Dosage: UNK, QD
     Route: 048
  2. BENEFIBER STICK PACKS [Suspect]
     Indication: NUTRITIONAL SUPPORT
     Dosage: 2 DF, PER DAY
     Route: 048
     Dates: end: 20111101

REACTIONS (2)
  - THERAPEUTIC RESPONSE UNEXPECTED [None]
  - HYPERTENSION [None]
